FAERS Safety Report 8057046-4 (Version None)
Quarter: 2012Q1

REPORT INFORMATION
  Report Type: 
  Country: None (occurrence: None)
  Receive Date: 20120119
  Receipt Date: 20120106
  Transmission Date: 20120608
  Serious: Yes (Life-Threatening, Hospitalization)
  Sender: FDA-Public Use
  Company Number: DK-NOVOPROD-318402

PATIENT
  Age: 37 Year
  Sex: Male
  Weight: 140 kg

DRUGS (7)
  1. VICTOZA [Suspect]
     Dosage: 1.2 MG, QD
     Route: 058
     Dates: start: 20101101, end: 20101105
  2. INSULIN DETEMIR [Concomitant]
     Indication: DIABETES MELLITUS
     Dosage: 90 IU, QD
     Route: 058
     Dates: start: 20091102
  3. DULOXETIME HYDROCHLORIDE [Concomitant]
     Indication: MENTAL DISORDER
     Dosage: 1.5 G, QD
     Route: 048
     Dates: start: 20091201
  4. QUETIAPINE [Concomitant]
     Indication: SCHIZOPHRENIA
     Dosage: 100 MG, QD
     Route: 048
     Dates: start: 20100419
  5. SIMVASTATIN [Concomitant]
     Indication: HYPERCHOLESTEROLAEMIA
     Dosage: 80 MG, QD
     Route: 048
     Dates: start: 20091102
  6. VICTOZA [Suspect]
     Indication: TYPE 2 DIABETES MELLITUS
     Dosage: 0.6 MG, QD
     Route: 058
     Dates: start: 20100426, end: 20101101
  7. METFORMIN [Concomitant]
     Indication: DIABETES MELLITUS
     Dosage: 500 MG, TID
     Route: 048
     Dates: start: 20091201

REACTIONS (4)
  - SLEEP APNOEA SYNDROME [None]
  - STRIDOR [None]
  - ANGIOEDEMA [None]
  - DYSPNOEA [None]
